FAERS Safety Report 6978422-4 (Version None)
Quarter: 2010Q3

REPORT INFORMATION
  Report Type: 
  Country: None (occurrence: None)
  Receive Date: 20100913
  Receipt Date: 20100908
  Transmission Date: 20110219
  Serious: Yes (Hospitalization)
  Sender: FDA-Public Use
  Company Number: PHHO2010NL10753

PATIENT
  Sex: Male
  Weight: 81.7 kg

DRUGS (1)
  1. AFINITOR [Suspect]
     Indication: NEUROENDOCRINE TUMOUR
     Dosage: UNK
     Route: 048
     Dates: start: 20100224, end: 20100810

REACTIONS (6)
  - ABSCESS DRAINAGE [None]
  - ANAEMIA OF CHRONIC DISEASE [None]
  - HAEMOGLOBIN DECREASED [None]
  - INTERSTITIAL LUNG DISEASE [None]
  - LIVER ABSCESS [None]
  - LUNG DISORDER [None]
